FAERS Safety Report 10147260 (Version 1)
Quarter: 2014Q2

REPORT INFORMATION
  Report Type: Spontaneous
  Country: US (occurrence: US)
  Receive Date: 20140501
  Receipt Date: 20140501
  Transmission Date: 20141212
  Serious: Yes (Hospitalization)
  Sender: FDA-Public Use
  Company Number: US-SA-2014SA001990

PATIENT
  Age: 62 Year
  Sex: Male
  Weight: 73.2 kg

DRUGS (1)
  1. HECTOROL [Suspect]
     Indication: HYPERPARATHYROIDISM SECONDARY
     Dosage: HECTORAL 2 MG; INTRAVENOUS PUSH (FORMULATION)
     Route: 042
     Dates: start: 20131216, end: 20131216

REACTIONS (2)
  - Dyspnoea [Recovered/Resolved]
  - Back pain [Recovered/Resolved]
